FAERS Safety Report 7000517-X (Version None)
Quarter: 2010Q3

REPORT INFORMATION
  Report Type: 
  Country: None (occurrence: None)
  Receive Date: 20100920
  Receipt Date: 20070523
  Transmission Date: 20110219
  Serious: Yes (Other)
  Sender: FDA-Public Use
  Company Number: US-ASTRAZENECA-2006UW22976

PATIENT
  Age: 648 Month
  Sex: Female
  Weight: 84.1 kg

DRUGS (12)
  1. SEROQUEL [Suspect]
     Indication: DEPRESSION
     Dosage: 25 MG THREE TIMES A DAY AS NEEDED
     Route: 048
     Dates: start: 20020222
  2. SEROQUEL [Suspect]
     Route: 048
     Dates: start: 20030301
  3. LEXAPRO [Concomitant]
     Indication: PSYCHOTIC DISORDER
     Dates: start: 20060101
  4. CELEXA [Concomitant]
     Indication: PSYCHOTIC DISORDER
     Dates: start: 20030101
  5. KLONOPIN [Concomitant]
     Indication: DRUG WITHDRAWAL MAINTENANCE THERAPY
     Dosage: 0.1 MG Q4H,1 MG TWICE A DAY
     Dates: start: 20010603
  6. THIAMINE HCL [Concomitant]
     Dates: start: 20010603
  7. ATIVAN [Concomitant]
     Indication: ANXIETY
     Dosage: P.R.N, 4 MG A DAY
     Dates: start: 20010603
  8. NEURONTIN [Concomitant]
     Dosage: 600 MG TID, 800 MG BID
     Dates: start: 20010603
  9. SERZONE [Concomitant]
     Dosage: 50 MG IN THE MORNING AND 100 MG AT BED TIME
     Dates: start: 20010603
  10. ZOLOFT [Concomitant]
     Dates: start: 20010603
  11. FLEXERIL [Concomitant]
     Dates: start: 20010603
  12. COMPAZINE [Concomitant]
     Dosage: P.R.N
     Dates: start: 20010603

REACTIONS (4)
  - DIABETIC KETOACIDOSIS [None]
  - PANCREATITIS [None]
  - TARDIVE DYSKINESIA [None]
  - TYPE 2 DIABETES MELLITUS [None]
